FAERS Safety Report 11653541 (Version 4)
Quarter: 2015Q4

REPORT INFORMATION
  Report Type: Spontaneous
  Country: VE (occurrence: VE)
  Receive Date: 20151022
  Receipt Date: 20151028
  Transmission Date: 20160304
  Serious: Yes (Other)
  Sender: FDA-Public Use
  Company Number: PHHY2015VE116420

PATIENT
  Age: 71 Year
  Sex: Female

DRUGS (11)
  1. MIRAPEX [Concomitant]
     Active Substance: PRAMIPEXOLE DIHYDROCHLORIDE
     Indication: PARKINSON^S DISEASE
     Dosage: 0.75 DF, AFTER EVERY MEAL
     Route: 065
     Dates: start: 2010
  2. STALEVO [Suspect]
     Active Substance: CARBIDOPA\ENTACAPONE\LEVODOPA
     Dosage: 150 MG, TID
     Route: 065
     Dates: start: 201507
  3. EUTIROX [Concomitant]
     Active Substance: LEVOTHYROXINE SODIUM
     Indication: THYROID DISORDER
     Dosage: 200 MG, QD
     Route: 065
  4. ALPRAZOLAM. [Concomitant]
     Active Substance: ALPRAZOLAM
     Indication: NERVOUS SYSTEM DISORDER
     Dosage: 0.75 DF, QD (1/4 AFTER BREAKFAST AND 1/2 AT BEDTIME)
     Route: 065
     Dates: start: 2010
  5. COAPROVEL [Concomitant]
     Active Substance: HYDROCHLOROTHIAZIDE\IRBESARTAN
     Indication: BLOOD PRESSURE ABNORMAL
     Dosage: 1 DF, QD
     Route: 065
     Dates: start: 2015
  6. LEXAPRO [Concomitant]
     Active Substance: ESCITALOPRAM OXALATE
     Indication: PRODUCT USED FOR UNKNOWN INDICATION
     Dosage: 10 MG, QD
     Route: 065
  7. PROVAX [Concomitant]
     Indication: PRODUCT USED FOR UNKNOWN INDICATION
     Dosage: 1 DF, BID
     Route: 065
  8. STALEVO [Suspect]
     Active Substance: CARBIDOPA\ENTACAPONE\LEVODOPA
     Indication: PARKINSON^S DISEASE
     Dosage: 200 MG, QD
     Route: 048
     Dates: start: 2010
  9. PARMITAL [Concomitant]
     Indication: PRODUCT USED FOR UNKNOWN INDICATION
     Dosage: 0.25 MG, TID
     Route: 065
  10. EUTHYROX [Concomitant]
     Active Substance: LEVOTHYROXINE SODIUM
     Indication: THYROID DISORDER
     Dosage: 3 DF, QD (THREE TABLETS EACH OF 25 MCG )
     Route: 065
     Dates: start: 2002
  11. STROCIT [Concomitant]
     Indication: PRODUCT USED FOR UNKNOWN INDICATION
     Dosage: 500 MG, QHS (AT 8 PM)
     Route: 065

REACTIONS (13)
  - Feeding disorder [Not Recovered/Not Resolved]
  - Hypertension [Unknown]
  - Parkinson^s disease [Not Recovered/Not Resolved]
  - Cognitive disorder [Unknown]
  - Sluggishness [Unknown]
  - Apathy [Not Recovered/Not Resolved]
  - Musculoskeletal disorder [Not Recovered/Not Resolved]
  - Leukoencephalopathy [Unknown]
  - Dyslipidaemia [Unknown]
  - Malaise [Not Recovered/Not Resolved]
  - Hypothyroidism [Unknown]
  - Depression [Unknown]
  - Tremor [Unknown]
